FAERS Safety Report 8619527-1 (Version None)
Quarter: 2012Q3

REPORT INFORMATION
  Report Type: 
  Country: None (occurrence: None)
  Receive Date: 20120824
  Receipt Date: 20120402
  Transmission Date: 20120928
  Serious: No
  Sender: FDA-Public Use
  Company Number: US-ASTRAZENECA-2012SE21830

PATIENT
  Sex: Male

DRUGS (1)
  1. SYMBICORT [Suspect]
     Dosage: 2 PUFFS, TWO TIMES A DAY
     Route: 055
     Dates: end: 20120101

REACTIONS (7)
  - COUGH [None]
  - DYSPNOEA [None]
  - ASTHMA [None]
  - WHEEZING [None]
  - PRODUCTIVE COUGH [None]
  - BREATH SOUNDS ABNORMAL [None]
  - DRUG INEFFECTIVE [None]
